FAERS Safety Report 16015952 (Version 1)
Quarter: 2019Q1

REPORT INFORMATION
  Report Type: Spontaneous
  Country: FR (occurrence: FR)
  Receive Date: 20190228
  Receipt Date: 20190228
  Transmission Date: 20190418
  Serious: Yes (Hospitalization)
  Sender: FDA-Public Use
  Company Number: FR-ACCORD-109323

PATIENT
  Age: 69 Year
  Sex: Male
  Weight: 71.8 kg

DRUGS (12)
  1. FLUOROURACIL ACCORD [Suspect]
     Active Substance: FLUOROURACIL
     Indication: METASTASES TO PERITONEUM
     Dosage: 372+4464 MG,STRENGTH:50 MG/ML
     Route: 041
     Dates: start: 20180726, end: 20180726
  2. IRINOTECAN MEDAC [Suspect]
     Active Substance: IRINOTECAN
     Indication: METASTASES TO PERITONEUM
     Dosage: STRENGTH:20 MG/ML
     Route: 041
     Dates: start: 20180726, end: 20180726
  3. METFORMIN [Concomitant]
     Active Substance: METFORMIN HYDROCHLORIDE
  4. EMEND [Concomitant]
     Active Substance: APREPITANT
  5. ESOMEPRAZOLE. [Concomitant]
     Active Substance: ESOMEPRAZOLE MAGNESIUM
  6. PLAVIX [Concomitant]
     Active Substance: CLOPIDOGREL BISULFATE
  7. OXALIPLATIN ACCORD [Suspect]
     Active Substance: OXALIPLATIN
     Indication: METASTASES TO PERITONEUM
     Dosage: STRENGTH:5MG/ML
     Route: 041
     Dates: start: 20180726, end: 20180726
  8. NOVORAPID [Concomitant]
     Active Substance: INSULIN ASPART
  9. RESITUNE [Concomitant]
     Active Substance: ASPIRIN
  10. FUROSEMIDE. [Suspect]
     Active Substance: FUROSEMIDE
     Indication: PRODUCT USED FOR UNKNOWN INDICATION
     Route: 048
     Dates: end: 20180802
  11. LEVEMIR [Concomitant]
     Active Substance: INSULIN DETEMIR
  12. TEMERIT [Concomitant]
     Active Substance: NEBIVOLOL
     Dosage: STRENGTH:5MG

REACTIONS (7)
  - Acute kidney injury [Recovered/Resolved]
  - Dehydration [Recovered/Resolved]
  - Diarrhoea [Recovering/Resolving]
  - Weight decreased [Not Recovered/Not Resolved]
  - Off label use [Unknown]
  - Mucosal inflammation [Not Recovered/Not Resolved]
  - Vomiting [Recovered/Resolved]

NARRATIVE: CASE EVENT DATE: 20180728
